FAERS Safety Report 10873388 (Version 1)
Quarter: 2015Q1

REPORT INFORMATION
  Report Type: Spontaneous
  Country: NL (occurrence: None)
  Receive Date: 20150223
  Receipt Date: 20150223
  Transmission Date: 20150721
  Serious: Yes (Hospitalization)
  Sender: FDA-Public Use
  Company Number: 2008NL0201

PATIENT
  Sex: Female

DRUGS (1)
  1. NITISINONE (NITISINONE) [Suspect]
     Active Substance: NITISINONE
     Indication: TYROSINAEMIA

REACTIONS (3)
  - Hepatocellular carcinoma [None]
  - Liver transplant [None]
  - Hepatic lesion [None]
